FAERS Safety Report 11503427 (Version 2)
Quarter: 2016Q3

REPORT INFORMATION
  Report Type: Spontaneous
  Country: US (occurrence: US)
  Receive Date: 20150914
  Receipt Date: 20160915
  Transmission Date: 20161109
  Serious: Yes (Other)
  Sender: FDA-Public Use
  Company Number: US-ASTELLAS-2015US024989

PATIENT
  Age: 70 Year
  Sex: Male

DRUGS (2)
  1. XTANDI [Suspect]
     Active Substance: ENZALUTAMIDE
     Route: 048
  2. XTANDI [Suspect]
     Active Substance: ENZALUTAMIDE
     Indication: HORMONE-REFRACTORY PROSTATE CANCER
     Route: 048

REACTIONS (14)
  - Metastases to bone [Unknown]
  - Peripheral swelling [Unknown]
  - Flatulence [Unknown]
  - Asthenia [Unknown]
  - Underdose [Unknown]
  - Malignant neoplasm progression [Unknown]
  - Micturition urgency [Unknown]
  - Lower limb fracture [Unknown]
  - Arthralgia [Unknown]
  - Nightmare [Unknown]
  - Abnormal dreams [Unknown]
  - Fatigue [Unknown]
  - Fatigue [Unknown]
  - Abdominal distension [Unknown]

NARRATIVE: CASE EVENT DATE: 20150901
